FAERS Safety Report 9738922 (Version 6)
Quarter: 2014Q2

REPORT INFORMATION
  Report Type: Report from Study
  Country: ES (occurrence: ES)
  Receive Date: 20131209
  Receipt Date: 20140512
  Transmission Date: 20141212
  Serious: Yes (Hospitalization)
  Sender: FDA-Public Use
  Company Number: ES-ROCHE-1310545

PATIENT
  Age: 58 Year
  Sex: Female

DRUGS (19)
  1. PERTUZUMAB [Suspect]
     Indication: HER-2 POSITIVE BREAST CANCER
     Dosage: LOADING DOSE
     Route: 042
     Dates: start: 20131018, end: 20131018
  2. PERTUZUMAB [Suspect]
     Dosage: MAINTENANCE DOSE,
     Route: 042
     Dates: start: 20131108
  3. TRASTUZUMAB [Suspect]
     Indication: HER-2 POSITIVE BREAST CANCER
     Dosage: LOADING DOSE
     Route: 042
     Dates: start: 20131018, end: 20131018
  4. TRASTUZUMAB [Suspect]
     Dosage: MAINTENANCE DOSE
     Route: 042
     Dates: start: 20131108
  5. PACLITAXEL [Suspect]
     Indication: HER-2 POSITIVE BREAST CANCER
     Dosage: LAST DOSE PRIOR TO SAE:08/NOV/2013
     Route: 065
     Dates: start: 20131018, end: 20131115
  6. PACLITAXEL [Suspect]
     Route: 065
     Dates: start: 20131229
  7. TRAMADOL [Concomitant]
     Dosage: PROPHYLAXIS OF PAIN
     Route: 065
     Dates: start: 2013, end: 20140114
  8. METFORMIN [Concomitant]
     Route: 065
     Dates: start: 20131115
  9. ALISKIREN [Concomitant]
     Route: 065
     Dates: start: 20131115, end: 20131115
  10. FENOFIBRATE [Concomitant]
     Route: 065
     Dates: start: 20131115, end: 20131115
  11. ALLOPURINOL [Concomitant]
     Dosage: PROPHYLAXIS OF HYPERURICEMIA
     Route: 065
     Dates: start: 2013
  12. OMEPRAZOLE [Concomitant]
     Dosage: PROPHYLAXIS OF GASTRIC PROTECTION
     Route: 065
     Dates: start: 20131123, end: 20131219
  13. OMEPRAZOLE [Concomitant]
     Route: 065
     Dates: start: 20131115
  14. ENALAPRIL [Concomitant]
     Dosage: PROPHYLAXIS OF HYPERTENSION
     Route: 065
     Dates: start: 20131123, end: 20140221
  15. EUCREAS [Concomitant]
     Dosage: 50/100 MG
     Route: 065
     Dates: start: 20131122, end: 20131219
  16. SIMVASTATINE [Concomitant]
     Route: 065
     Dates: start: 20131122, end: 20131219
  17. SIMVASTATINE [Concomitant]
     Route: 065
     Dates: start: 20131115
  18. CIPROFLOXACINE [Concomitant]
     Route: 065
     Dates: start: 20131108, end: 20140109
  19. TARGIN [Concomitant]
     Dosage: 5/2.5MG
     Route: 065
     Dates: start: 20140117, end: 20140130

REACTIONS (1)
  - Renal impairment [Recovered/Resolved]
